FAERS Safety Report 4650079-7 (Version None)
Quarter: 2005Q2

REPORT INFORMATION
  Report Type: 
  Country: None (occurrence: None)
  Receive Date: 20050428
  Receipt Date: 20050418
  Transmission Date: 20051028
  Serious: Yes (Other)
  Sender: FDA-Public Use
  Company Number: HQWYE111819APR05

PATIENT
  Age: 73 Year
  Sex: Female

DRUGS (6)
  1. CORDARONE [Suspect]
     Indication: ATRIAL FIBRILLATION
     Route: 048
     Dates: start: 19930801, end: 19941001
  2. CORDARONE [Suspect]
     Indication: ATRIAL FLUTTER
     Route: 048
     Dates: start: 19930801, end: 19941001
  3. FUROSEMIDE [Concomitant]
  4. PROCHLORPERAZINE MALEATE [Concomitant]
  5. PROPAFENONE HCL [Concomitant]
  6. DILTIAZEM [Concomitant]

REACTIONS (2)
  - ASCITES [None]
  - HEPATIC CIRRHOSIS [None]
